FAERS Safety Report 15651183 (Version 1)
Quarter: 2018Q4

REPORT INFORMATION
  Report Type: Spontaneous
  Country: US (occurrence: US)
  Receive Date: 20181123
  Receipt Date: 20181123
  Transmission Date: 20190205
  Serious: No
  Sender: FDA-Public Use
  Company Number: US-BAUSCH-BL-2018-031845

PATIENT
  Age: 83 Year
  Sex: Female

DRUGS (1)
  1. BUPROPION. [Suspect]
     Active Substance: BUPROPION
     Indication: DEPRESSION
     Route: 048

REACTIONS (5)
  - Product use complaint [Unknown]
  - Malaise [Unknown]
  - Product substitution issue [Unknown]
  - Disease recurrence [Unknown]
  - Depression [Unknown]
